FAERS Safety Report 4882683-5 (Version None)
Quarter: 2006Q1

REPORT INFORMATION
  Report Type: 
  Country: None (occurrence: None)
  Receive Date: 20060113
  Receipt Date: 20060103
  Transmission Date: 20060701
  Serious: Yes (Death, Hospitalization)
  Sender: FDA-Public Use
  Company Number: USA-2006-0022084

PATIENT
  Age: 57 Year
  Sex: Female
  Weight: 82.5 kg

DRUGS (5)
  1. OXYCODONE HCL [Suspect]
  2. CITALOPRAM (CITALOPRAM) [Suspect]
  3. ALPRAZOLAM [Suspect]
  4. IBUPROFEN [Suspect]
  5. DOXYLAMINE (DOXYLAMINE) [Suspect]

REACTIONS (7)
  - ALCOHOLISM [None]
  - CARDIO-RESPIRATORY ARREST [None]
  - DIABETES MELLITUS [None]
  - DRUG TOXICITY [None]
  - HEPATIC CIRRHOSIS [None]
  - MULTIPLE DRUG OVERDOSE ACCIDENTAL [None]
  - UNRESPONSIVE TO VERBAL STIMULI [None]
